FAERS Safety Report 7518366-2 (Version None)
Quarter: 2011Q2

REPORT INFORMATION
  Report Type: 
  Country: None (occurrence: None)
  Receive Date: 20110602
  Receipt Date: 20110519
  Transmission Date: 20111010
  Serious: Yes (Death, Other)
  Sender: FDA-Public Use
  Company Number: US-BAYER-200940198NA

PATIENT
  Age: 39 Year
  Sex: Male
  Weight: 80.4 kg

DRUGS (28)
  1. SIMVASTATIN [Concomitant]
     Dosage: 40 MG, HS
     Route: 048
     Dates: start: 20031223
  2. HEPARIN [Concomitant]
     Dosage: 1000 UNITS IRRIGATION
     Route: 050
     Dates: start: 20040112, end: 20040112
  3. FUROSEMIDE [Concomitant]
     Dosage: 60 MG, BID
     Route: 048
     Dates: start: 20040111
  4. PLASMA [Concomitant]
     Dosage: 5 U, ONCE
     Route: 042
     Dates: start: 20040112
  5. TRASYLOL [Suspect]
     Dosage: 50 CC/HR INFUSION FOR 6 HRS
     Route: 041
     Dates: start: 20030827, end: 20030827
  6. TRASYLOL [Suspect]
     Dosage: 1 ML INTIAL TEST DOSE
     Route: 042
     Dates: start: 20040112, end: 20040112
  7. GENTAMYCIN SULFATE [Concomitant]
     Dosage: 80 MG, QD
     Dates: start: 20031123
  8. LIDOCAINE [Concomitant]
     Dosage: UNK
     Route: 042
     Dates: start: 20040112, end: 20040112
  9. TRASYLOL [Suspect]
     Dosage: 1 ML, ONCE, INITIAL TEST DOSE
     Route: 042
     Dates: start: 20030827, end: 20030827
  10. PERCOCET [Concomitant]
     Dosage: 325 2 TABS EVERY 6 HOURS AS NEEDED
     Route: 048
     Dates: start: 20040108
  11. PANTOPRAZOLE [Concomitant]
     Dosage: 40 MG, QD
     Route: 048
     Dates: start: 20040101
  12. WARFARIN SODIUM [Concomitant]
     Dosage: 10 MG, HS
     Route: 048
     Dates: start: 20040111
  13. HEPARIN [Concomitant]
     Dosage: SLIDING SCALE
     Route: 041
     Dates: start: 20040111
  14. MILRINONE [Concomitant]
     Dosage: UNK
     Route: 042
     Dates: start: 20040112, end: 20040112
  15. PLATELETS [Concomitant]
     Dosage: 5 PACKS
     Route: 042
     Dates: start: 20040112
  16. TRASYLOL [Suspect]
     Dosage: 200 CC LOADING DOSE
     Route: 042
     Dates: start: 20030827, end: 20030827
  17. AMOXICILLIN TRIHYDRATE [Concomitant]
     Dosage: UNK
     Dates: start: 20031223
  18. EPOETIN ALFA [Concomitant]
     Dosage: 40,000  UNITS EVERY MONDAY
     Route: 058
     Dates: start: 20031117
  19. RED BLOOD CELLS [Concomitant]
     Dosage: 9 U, ONCE
     Route: 042
     Dates: start: 20040112
  20. CRYOPRECIPITATES [Concomitant]
     Dosage: 100
     Route: 042
     Dates: start: 20040112
  21. TRASYLOL [Suspect]
     Indication: HEART TRANSPLANT
     Route: 042
     Dates: start: 20030101
  22. FUROSEMIDE [Concomitant]
     Dosage: 20 MG
     Route: 042
     Dates: start: 20040112, end: 20040112
  23. INSULIN [Concomitant]
     Dosage: UNK
     Route: 042
     Dates: start: 20040112, end: 20040112
  24. TRASYLOL [Suspect]
     Dosage: 50 ML/HR INFUSION
     Route: 042
     Dates: start: 20040112, end: 20040112
  25. SOLU-MEDROL [Concomitant]
     Dosage: UNK
     Route: 042
     Dates: start: 20040112, end: 20040112
  26. TRASYLOL [Suspect]
     Dosage: 200 ML LOADING DOSE
     Route: 042
     Dates: start: 20040112, end: 20040112
  27. TRACLEER [Concomitant]
     Dosage: 125 MG, BID
     Route: 048
     Dates: start: 20040103
  28. AMPICILLIN SODIUM [Concomitant]
     Dosage: 2 GMS EVERY 4 HOURS
     Route: 042
     Dates: start: 20031213

REACTIONS (13)
  - RENAL IMPAIRMENT [None]
  - DEATH [None]
  - RENAL INJURY [None]
  - FEAR [None]
  - EMOTIONAL DISTRESS [None]
  - STRESS [None]
  - RENAL FAILURE [None]
  - ANXIETY [None]
  - MULTI-ORGAN FAILURE [None]
  - PAIN [None]
  - UNEVALUABLE EVENT [None]
  - ANHEDONIA [None]
  - INJURY [None]
